FAERS Safety Report 20798958 (Version 1)
Quarter: 2022Q2

REPORT INFORMATION
  Report Type: Spontaneous
  Country: US (occurrence: US)
  Receive Date: 20220507
  Receipt Date: 20220507
  Transmission Date: 20220720
  Serious: No
  Sender: FDA-Public Use
  Company Number: US-BRISTOL-MYERS SQUIBB COMPANY-2022-025809

PATIENT
  Age: 69 Year
  Sex: Female

DRUGS (2)
  1. ONUREG [Suspect]
     Active Substance: AZACITIDINE
     Indication: Acute myeloid leukaemia
     Dosage: DAILY X 14 DAYS ON, 14 DAYS OFF
     Route: 065
     Dates: start: 202104
  2. ONUREG [Suspect]
     Active Substance: AZACITIDINE
     Dosage: FREQUENCY: DAYS 1-14 EVERY 28 DAYS
     Route: 048
     Dates: start: 202204

REACTIONS (3)
  - Abdominal pain [Unknown]
  - Nausea [Unknown]
  - Chills [Unknown]

NARRATIVE: CASE EVENT DATE: 20220401
